FAERS Safety Report 22367681 (Version 1)
Quarter: 2023Q2

REPORT INFORMATION
  Report Type: Spontaneous
  Country: CA (occurrence: CA)
  Receive Date: 20230525
  Receipt Date: 20230525
  Transmission Date: 20230722
  Serious: Yes (Death, Life-Threatening, Hospitalization, Other)
  Sender: FDA-Public Use
  Company Number: CA-HLS-202301187

PATIENT
  Age: 49 Year
  Sex: Female

DRUGS (2)
  1. CARBIDOPA MONOHYDRATE/LEVODOPA [Concomitant]
     Route: 065
  2. CLOZAPINE [Suspect]
     Active Substance: CLOZAPINE
     Indication: Schizophrenia
     Dosage: 1 EVERY 1 DAYS?AMOUNT: 50 MILLIGRAM?TABLETS DOSAGE FORM
     Route: 065

REACTIONS (2)
  - Death [Fatal]
  - Pain [Fatal]
